FAERS Safety Report 6178526-2 (Version None)
Quarter: 2009Q2

REPORT INFORMATION
  Report Type: 
  Country: None (occurrence: None)
  Receive Date: 20090430
  Receipt Date: 20090423
  Transmission Date: 20091009
  Serious: Yes (Hospitalization)
  Sender: FDA-Public Use
  Company Number: TCI2009A00454

PATIENT
  Age: 49 Year
  Sex: Male

DRUGS (6)
  1. AG-1749 (CODE NOT BROKEN) (LANSOPRAZOLE) [Suspect]
     Indication: PROPHYLAXIS AGAINST GASTROINTESTINAL ULCER
     Dosage: AG-1749 15 MG OR GEFARNATE 100 MG (2 IN 1 D) PER ORAL
     Route: 048
     Dates: start: 20080131, end: 20090209
  2. LORCAM (LORNOXICAM) [Concomitant]
  3. RIMATIL (BUCILLAMINE) [Concomitant]
  4. KETOPROFEN [Concomitant]
  5. PREDNISOLONE [Concomitant]
  6. .. [Suspect]

REACTIONS (1)
  - DUODENITIS [None]
